FAERS Safety Report 10983303 (Version 1)
Quarter: 2015Q2

REPORT INFORMATION
  Report Type: Spontaneous
  Country: US (occurrence: None)
  Receive Date: 20150402
  Receipt Date: 20150402
  Transmission Date: 20150821
  Serious: Yes (Hospitalization)
  Sender: FDA-Public Use
  Company Number: None

PATIENT
  Age: 75 Year
  Sex: Male

DRUGS (2)
  1. 5FU [Suspect]
     Active Substance: FLUOROURACIL
     Indication: RECTAL CANCER
     Dosage: 5FU: 450MG/M2, 3 DAYS OF 6 CYCLES
     Route: 042
     Dates: start: 20150310, end: 20150312
  2. LEUCOVORIN [Suspect]
     Active Substance: LEUCOVORIN
     Dosage: LEUCOVORIN 50MG?

REACTIONS (2)
  - Syncope [None]
  - Hypotension [None]

NARRATIVE: CASE EVENT DATE: 20150313
